FAERS Safety Report 5225019-2 (Version None)
Quarter: 2007Q1

REPORT INFORMATION
  Report Type: 
  Country: None (occurrence: None)
  Receive Date: 20070126
  Receipt Date: 20070119
  Transmission Date: 20070707
  Serious: Yes (Other)
  Sender: FDA-Public Use
  Company Number: 2007S1000023

PATIENT
  Age: 9 Day
  Sex: Female

DRUGS (3)
  1. NITRIC OXIDE [Suspect]
     Indication: LUNG DISORDER
     Dosage: 5 PPM; CONT INH
     Route: 055
     Dates: start: 20061226, end: 20070116
  2. NITRIC OXIDE [Suspect]
     Indication: PROPHYLAXIS
     Dosage: 5 PPM; CONT INH
     Route: 055
     Dates: start: 20061226, end: 20070116
  3. NETILMICIN (NETILMICIN) [Concomitant]

REACTIONS (1)
  - STAPHYLOCOCCAL SEPSIS [None]
